FAERS Safety Report 20770252 (Version 3)
Quarter: 2023Q2

REPORT INFORMATION
  Report Type: Spontaneous
  Country: PT (occurrence: PT)
  Receive Date: 20220429
  Receipt Date: 20230616
  Transmission Date: 20230722
  Serious: Yes (Life-Threatening, Hospitalization, Other)
  Sender: FDA-Public Use
  Company Number: PT-NOVARTISPH-NVSC2021PT279879

PATIENT
  Age: 66 Year
  Sex: Female

DRUGS (8)
  1. OLANZAPINE [Suspect]
     Active Substance: OLANZAPINE
     Indication: Bipolar disorder
     Dosage: UNK
     Route: 048
  2. AMANTADINE HYDROCHLORIDE [Suspect]
     Active Substance: AMANTADINE HYDROCHLORIDE
     Indication: Bipolar disorder
     Dosage: UNK
     Route: 048
  3. LEVOTHYROXINE SODIUM [Suspect]
     Active Substance: LEVOTHYROXINE SODIUM
     Indication: Hypothyroidism
     Dosage: UNK
     Route: 065
  4. VALPROATE SODIUM [Suspect]
     Active Substance: VALPROATE SODIUM
     Indication: Bipolar disorder
     Dosage: UNK
     Route: 065
  5. BIPERIDEN HYDROCHLORIDE [Suspect]
     Active Substance: BIPERIDEN HYDROCHLORIDE
     Indication: Bipolar disorder
     Dosage: UNK
     Route: 065
  6. LITHIUM CARBONATE [Suspect]
     Active Substance: LITHIUM CARBONATE
     Indication: Bipolar disorder
     Dosage: UNK
     Route: 048
  7. LITHIUM CARBONATE [Suspect]
     Active Substance: LITHIUM CARBONATE
     Indication: Hypothyroidism
  8. VALPROIC ACID [Concomitant]
     Active Substance: VALPROIC ACID
     Indication: Product used for unknown indication
     Dosage: UNK
     Route: 048

REACTIONS (22)
  - Neuroleptic malignant syndrome [Recovered/Resolved]
  - Bradykinesia [Unknown]
  - Hyperlactacidaemia [Unknown]
  - Acute kidney injury [Unknown]
  - Hyperglycaemia [Unknown]
  - Pyrexia [Unknown]
  - Hyperkalaemia [Unknown]
  - Muscle rigidity [Unknown]
  - Alkalosis [Unknown]
  - Hypernatraemia [Unknown]
  - Dehydration [Unknown]
  - Malnutrition [Unknown]
  - Hyperhidrosis [Unknown]
  - Leukocytosis [Unknown]
  - Hepatic cytolysis [Unknown]
  - Neutrophilia [Unknown]
  - Mutism [Unknown]
  - Tachycardia [Unknown]
  - Fatigue [Unknown]
  - Pupil fixed [Unknown]
  - Hypertension [Unknown]
  - Musculoskeletal stiffness [Unknown]
